FAERS Safety Report 4849876-4 (Version None)
Quarter: 2005Q4

REPORT INFORMATION
  Report Type: 
  Country: None (occurrence: None)
  Receive Date: 20051209
  Receipt Date: 20051005
  Transmission Date: 20060501
  Serious: Yes (Hospitalization, Disabling)
  Sender: FDA-Public Use
  Company Number: CA-MERCK-0510CAN00060

PATIENT
  Age: 51 Year
  Sex: Male
  Weight: 70 kg

DRUGS (6)
  1. VIOXX [Suspect]
     Indication: PAIN
     Route: 048
     Dates: start: 20020625, end: 20030801
  2. VIOXX [Suspect]
     Route: 048
     Dates: start: 20020625, end: 20030801
  3. VIOXX [Suspect]
     Route: 048
     Dates: start: 20020625, end: 20030801
  4. VIOXX [Suspect]
     Route: 048
     Dates: start: 20020625, end: 20030801
  5. ASPIRIN [Concomitant]
     Route: 065
  6. ACETAMINOPHEN [Concomitant]
     Route: 065

REACTIONS (2)
  - CORONARY ARTERY DISEASE [None]
  - CORONARY ARTERY OCCLUSION [None]
